FAERS Safety Report 5427482-0 (Version None)
Quarter: 2007Q3

REPORT INFORMATION
  Report Type: 
  Country: None (occurrence: None)
  Receive Date: 20070828
  Receipt Date: 20070822
  Transmission Date: 20080115
  Serious: Yes (Disabling, Other)
  Sender: FDA-Public Use
  Company Number: PHNU2007DE02491

PATIENT
  Sex: Male
  Weight: 84 kg

DRUGS (3)
  1. DIOVAN [Suspect]
     Indication: HYPERTENSION
     Dates: start: 20061120
  2. AMLODIPINE [Concomitant]
     Indication: HYPERTENSION
     Dosage: 5 MG, QD
     Dates: start: 20061120
  3. METOPROLOL SUCCINATE [Concomitant]
     Dosage: 47.5 MG, QD

REACTIONS (2)
  - GAIT DISTURBANCE [None]
  - STOMACH DISCOMFORT [None]
